FAERS Safety Report 12086278 (Version 1)
Quarter: 2016Q1

REPORT INFORMATION
  Report Type: Spontaneous
  Country: US (occurrence: US)
  Receive Date: 20160217
  Receipt Date: 20160217
  Transmission Date: 20160526
  Serious: No
  Sender: FDA-Public Use
  Company Number: US-ALLERGAN-1511274US

PATIENT
  Age: 83 Year
  Sex: Female

DRUGS (3)
  1. RESTASIS [Suspect]
     Active Substance: CYCLOSPORINE
     Indication: DRY EYE
     Route: 047
  2. RESTASIS [Suspect]
     Active Substance: CYCLOSPORINE
     Route: 047
  3. CLONAZEPAM. [Concomitant]
     Active Substance: CLONAZEPAM
     Indication: SLEEP DISORDER
     Dosage: UNK
     Route: 048

REACTIONS (3)
  - Localised infection [Not Recovered/Not Resolved]
  - Corneal abrasion [Recovered/Resolved]
  - Punctal plug insertion [Not Recovered/Not Resolved]

NARRATIVE: CASE EVENT DATE: 201506
